FAERS Safety Report 6501636-4 (Version None)
Quarter: 2009Q4

REPORT INFORMATION
  Report Type: 
  Country: None (occurrence: None)
  Receive Date: 20091127
  Receipt Date: 20090417
  Transmission Date: 20100525
  Serious: Yes (Other)
  Sender: FDA-Public Use
  Company Number: WAES 98031472

PATIENT
  Age: 51 Year
  Sex: Female
  Weight: 45.3597 kg

DRUGS (6)
  1. FOSAMAX [Suspect]
     Indication: OSTEOPOROSIS
     Dosage: PO;10 MG/AM/PO;5 MG/DAILY/PO;70 MG/WKY/PO
     Route: 048
     Dates: start: 19980217, end: 19980305
  2. FOSAMAX [Suspect]
     Indication: OSTEOPOROSIS
     Dosage: PO;10 MG/AM/PO;5 MG/DAILY/PO;70 MG/WKY/PO
     Route: 048
     Dates: end: 20070120
  3. FOSAMAX [Suspect]
     Indication: OSTEOPOROSIS
     Dosage: PO;10 MG/AM/PO;5 MG/DAILY/PO;70 MG/WKY/PO
     Route: 048
     Dates: start: 19900101
  4. FOSAMAX [Suspect]
     Indication: OSTEOPOROSIS
     Dosage: PO;10 MG/AM/PO;5 MG/DAILY/PO;70 MG/WKY/PO
     Route: 048
     Dates: start: 19980301
  5. BONIVA [Suspect]
     Dosage: MTH/PO
     Route: 048
     Dates: end: 20070201
  6. PROVERA [Concomitant]

REACTIONS (8)
  - BRUXISM [None]
  - INTERVERTEBRAL DISC DEGENERATION [None]
  - INTERVERTEBRAL DISC PROTRUSION [None]
  - LUMBAR SPINAL STENOSIS [None]
  - OESOPHAGEAL PAIN [None]
  - OSTEONECROSIS [None]
  - POSTMENOPAUSAL HAEMORRHAGE [None]
  - SCOLIOSIS [None]
